FAERS Safety Report 16756608 (Version 1)
Quarter: 2019Q3

REPORT INFORMATION
  Report Type: Spontaneous
  Country: US (occurrence: US)
  Receive Date: 20190829
  Receipt Date: 20190829
  Transmission Date: 20191005
  Serious: Yes (Other)
  Sender: FDA-Public Use
  Company Number: US-BAUSCH-BL-2019-024675

PATIENT
  Age: 63 Year
  Sex: Female
  Weight: 80.63 kg

DRUGS (1)
  1. PLENVU [Suspect]
     Active Substance: ASCORBIC ACID\POLYETHYLENE GLYCOL 3350\POTASSIUM CHLORIDE\SODIUM ASCORBATE\SODIUM CHLORIDE\SODIUM SULFATE
     Indication: BOWEL PREPARATION
     Dosage: AS DIRECTED; TOOK THE FIRST DOSE AT 5:00 PM (ON 22/AUG/2019), SECOND DOSE AT 7.30 AM ON 23/AUG/2019
     Route: 065
     Dates: start: 20190822, end: 20190823

REACTIONS (13)
  - Throat irritation [Unknown]
  - Decreased appetite [Not Recovered/Not Resolved]
  - Headache [Not Recovered/Not Resolved]
  - Feeling abnormal [Unknown]
  - Nausea [Unknown]
  - Nasal discomfort [Unknown]
  - Product taste abnormal [Unknown]
  - Procedural vomiting [Unknown]
  - Sinus pain [Not Recovered/Not Resolved]
  - Dehydration [Unknown]
  - Mucous stools [Not Recovered/Not Resolved]
  - Insomnia [Unknown]
  - Rhinorrhoea [Not Recovered/Not Resolved]

NARRATIVE: CASE EVENT DATE: 20190822
